FAERS Safety Report 5279708-4 (Version None)
Quarter: 2007Q1

REPORT INFORMATION
  Report Type: 
  Country: None (occurrence: None)
  Receive Date: 20070328
  Receipt Date: 20070322
  Transmission Date: 20070707
  Serious: Yes (Hospitalization)
  Sender: FDA-Public Use
  Company Number: FR-ABBOTT-07P-056-0360372-00

PATIENT
  Sex: Male
  Weight: 63 kg

DRUGS (6)
  1. HUMIRA [Suspect]
     Indication: RHEUMATOID ARTHRITIS
     Route: 058
     Dates: start: 20050512, end: 20070221
  2. METHOTREXATE [Suspect]
     Indication: DRUG USE FOR UNKNOWN INDICATION
     Dates: start: 20040330, end: 20070221
  3. PREDNISONE [Suspect]
     Indication: DRUG USE FOR UNKNOWN INDICATION
     Route: 048
     Dates: start: 20040901, end: 20070201
  4. FOLIC ACID [Concomitant]
     Indication: DRUG USE FOR UNKNOWN INDICATION
     Route: 048
     Dates: end: 20070221
  5. SERENOA REPENS [Concomitant]
     Indication: DRUG USE FOR UNKNOWN INDICATION
     Route: 048
  6. ZOPICLONE [Concomitant]
     Indication: DRUG USE FOR UNKNOWN INDICATION
     Route: 048

REACTIONS (4)
  - CHILLS [None]
  - DYSPNOEA [None]
  - MYALGIA [None]
  - PNEUMONIA LEGIONELLA [None]
